FAERS Safety Report 20554454 (Version 1)
Quarter: 2022Q1

REPORT INFORMATION
  Report Type: Spontaneous
  Country: CN (occurrence: None)
  Receive Date: 20220304
  Receipt Date: 20220304
  Transmission Date: 20220423
  Serious: Yes (Hospitalization)
  Sender: FDA-Public Use
  Company Number: 2022A093114

PATIENT
  Age: 27746 Day
  Sex: Male
  Weight: 75 kg

DRUGS (1)
  1. DAPAGLIFLOZIN [Suspect]
     Active Substance: DAPAGLIFLOZIN
     Indication: Diabetes mellitus
     Route: 048
     Dates: start: 20220220, end: 20220221

REACTIONS (8)
  - Hyperpyrexia [Recovering/Resolving]
  - Tremor [Unknown]
  - Nausea [Unknown]
  - Anxiety [Unknown]
  - Vomiting [Unknown]
  - Pollakiuria [Unknown]
  - Hyperhidrosis [Unknown]
  - Enterobacter test positive [Unknown]

NARRATIVE: CASE EVENT DATE: 20220221
